FAERS Safety Report 5156092-8 (Version None)
Quarter: 2006Q4

REPORT INFORMATION
  Report Type: 
  Country: None (occurrence: None)
  Receive Date: 20061122
  Receipt Date: 20060627
  Transmission Date: 20070319
  Serious: Yes (Other)
  Sender: FDA-Public Use
  Company Number: PHEH2006US08359

PATIENT
  Age: 5 Year
  Sex: Female
  Weight: 30.839 kg

DRUGS (4)
  1. TRILEPTAL [Suspect]
     Indication: COMPLEX PARTIAL SEIZURES
     Dosage: 720 MG, BID
     Route: 048
     Dates: start: 20051201
  2. TRILEPTAL [Suspect]
     Dosage: UNK, UNK
     Dates: start: 20060301
  3. TRILEPTAL [Suspect]
     Dosage: 300MG/5CC, 9CC IN AM, 14CC HS
  4. PYRIDOXINE HCL [Concomitant]
     Dosage: 100 MG, UNK

REACTIONS (15)
  - AGGRESSION [None]
  - ALANINE AMINOTRANSFERASE INCREASED [None]
  - ASPARTATE AMINOTRANSFERASE INCREASED [None]
  - BALANCE DISORDER [None]
  - BLOOD CHOLESTEROL INCREASED [None]
  - EPILEPSY [None]
  - GAIT DISTURBANCE [None]
  - HEPATIC ENZYME INCREASED [None]
  - MEMORY IMPAIRMENT [None]
  - OBESITY [None]
  - SPEECH DISORDER DEVELOPMENTAL [None]
  - SWELLING FACE [None]
  - THYROXINE DECREASED [None]
  - TOOTH DISORDER [None]
  - WEIGHT INCREASED [None]
